FAERS Safety Report 11534205 (Version 1)
Quarter: 2015Q3

REPORT INFORMATION
  Report Type: Spontaneous
  Country: US (occurrence: US)
  Receive Date: 20150922
  Receipt Date: 20150922
  Transmission Date: 20151125
  Serious: No
  Sender: FDA-Public Use
  Company Number: US-ACCORD-033127

PATIENT
  Age: 62 Year
  Sex: Female

DRUGS (9)
  1. AMITRIPTYLINE ACCORD [Suspect]
     Active Substance: AMITRIPTYLINE
     Indication: INSOMNIA
     Dosage: 2 TABLETS AT BEDTIME (HS). STRENGTH: 10 MG.
     Route: 048
     Dates: start: 20150715
  2. ZIAC [Concomitant]
     Active Substance: BISOPROLOL FUMARATE\HYDROCHLOROTHIAZIDE
  3. LEVOTHYROXINE. [Concomitant]
     Active Substance: LEVOTHYROXINE
  4. LIVALO [Concomitant]
     Active Substance: PITAVASTATIN CALCIUM
  5. FISH OIL [Concomitant]
     Active Substance: FISH OIL
  6. MAGNESIUM HYDROXIDE. [Concomitant]
     Active Substance: MAGNESIUM HYDROXIDE
  7. HYDROCHLOROTHIAZIDE/LOSARTAN POTASSIUM [Concomitant]
     Dosage: LOSARTAN/HCTZ
  8. POTASSIUM [Concomitant]
     Active Substance: POTASSIUM
  9. ESTRADIOL. [Concomitant]
     Active Substance: ESTRADIOL

REACTIONS (2)
  - Off label use [Unknown]
  - Drug ineffective [Not Recovered/Not Resolved]

NARRATIVE: CASE EVENT DATE: 20150715
